FAERS Safety Report 6453814-0 (Version None)
Quarter: 2009Q4

REPORT INFORMATION
  Report Type: 
  Country: None (occurrence: None)
  Receive Date: 20091124
  Receipt Date: 20091119
  Transmission Date: 20100525
  Serious: Yes (Life-Threatening, Hospitalization)
  Sender: FDA-Public Use
  Company Number: US-NOVOPROD-301048

PATIENT
  Sex: Male
  Weight: 120.6 kg

DRUGS (2)
  1. SIBA FLEXPEN [Suspect]
     Indication: TYPE 2 DIABETES MELLITUS
     Dosage: 148 IU, QD
     Route: 058
  2. NOVOLOG [Suspect]
     Indication: TYPE 2 DIABETES MELLITUS
     Dosage: 148 IU, QD
     Route: 058

REACTIONS (5)
  - BLOOD GLUCOSE DECREASED [None]
  - BREATH SOUNDS ABNORMAL [None]
  - DYSPNOEA [None]
  - POLLAKIURIA [None]
  - SWELLING FACE [None]
